FAERS Safety Report 24580758 (Version 1)
Quarter: 2024Q4

REPORT INFORMATION
  Report Type: Spontaneous
  Country: US (occurrence: US)
  Receive Date: 20241105
  Receipt Date: 20241105
  Transmission Date: 20250115
  Serious: No
  Sender: BIOVITRUM
  Company Number: US-BIOVITRUM-2024-US-014004

PATIENT
  Age: 70 Year
  Sex: Female

DRUGS (1)
  1. AVATROMBOPAG [Suspect]
     Active Substance: AVATROMBOPAG
     Indication: Thrombocytopenia
     Dosage: DAILY?AVA INITIATED AT 20 MG Q.D. AT THE START OF C12.?AVA DURATION:  APPROX. 7 MONTHS.

REACTIONS (2)
  - Off label use [Unknown]
  - Contusion [Unknown]
